FAERS Safety Report 13342280 (Version 5)
Quarter: 2018Q4

REPORT INFORMATION
  Report Type: Spontaneous
  Country: US (occurrence: US)
  Receive Date: 20170316
  Receipt Date: 20181113
  Transmission Date: 20190204
  Serious: Yes (Other)
  Sender: FDA-Public Use
  Company Number: US-VERTEX PHARMACEUTICALS-2017-001414

PATIENT
  Age: 8 Year
  Sex: Male
  Weight: 35 kg

DRUGS (23)
  1. QVAR [Concomitant]
     Active Substance: BECLOMETHASONE DIPROPIONATE
  2. BETHKIS [Concomitant]
     Active Substance: TOBRAMYCIN
  3. MIRALAX [Concomitant]
     Active Substance: POLYETHYLENE GLYCOL 3350
  4. PULMOZYME [Concomitant]
     Active Substance: DORNASE ALFA
  5. ORKAMBI [Suspect]
     Active Substance: IVACAFTOR\LUMACAFTOR
     Indication: CYSTIC FIBROSIS
     Dosage: 2 DF (100-125MG EACH), BID
     Route: 048
     Dates: start: 20170302, end: 201703
  6. ORKAMBI [Suspect]
     Active Substance: IVACAFTOR\LUMACAFTOR
     Dosage: 100-125 MG
     Route: 048
     Dates: start: 2017
  7. ACETYL CYSTEINE [Concomitant]
  8. NASONEX [Concomitant]
     Active Substance: MOMETASONE FUROATE
  9. XOPENEX [Concomitant]
     Active Substance: LEVALBUTEROL HYDROCHLORIDE
  10. SINGULAIR [Concomitant]
     Active Substance: MONTELUKAST SODIUM
  11. MONTELUKAST [Concomitant]
     Active Substance: MONTELUKAST SODIUM
  12. DEKAS PLUS [Concomitant]
  13. HYPERSAL [Concomitant]
  14. DUOCAL [Concomitant]
  15. CLARITIN [Concomitant]
     Active Substance: LORATADINE
  16. AZITHROMYCIN ANHYDROUS. [Concomitant]
     Active Substance: AZITHROMYCIN ANHYDROUS
  17. ACAPELLA [Concomitant]
  18. NEXIUM [Concomitant]
     Active Substance: ESOMEPRAZOLE MAGNESIUM
  19. CREON [Concomitant]
     Active Substance: PANCRELIPASE AMYLASE\PANCRELIPASE LIPASE\PANCRELIPASE PROTEASE
  20. LEVALBUTEROL. [Concomitant]
     Active Substance: LEVALBUTEROL
  21. MUCINEX [Concomitant]
     Active Substance: GUAIFENESIN
  22. VITAMIN D [Concomitant]
     Active Substance: CHOLECALCIFEROL
  23. PERIACTIN [Concomitant]
     Active Substance: CYPROHEPTADINE HYDROCHLORIDE

REACTIONS (2)
  - Product quality issue [Unknown]
  - Rash papular [Recovered/Resolved]

NARRATIVE: CASE EVENT DATE: 20170310
